FAERS Safety Report 18539949 (Version 1)
Quarter: 2020Q4

REPORT INFORMATION
  Report Type: Spontaneous
  Country: US (occurrence: US)
  Receive Date: 20201124
  Receipt Date: 20201124
  Transmission Date: 20210114
  Serious: No
  Sender: FDA-Public Use
  Company Number: US-BAYER-2020-255465

PATIENT
  Age: 75 Year

DRUGS (2)
  1. MIRALAX [Suspect]
     Active Substance: POLYETHYLENE GLYCOL 3350
     Dosage: HALF CAP
     Route: 065
     Dates: start: 20201120, end: 20201120
  2. VITAMINS NOS [Concomitant]
     Active Substance: VITAMINS

REACTIONS (2)
  - Expired product administered [None]
  - Incorrect dose administered [Unknown]

NARRATIVE: CASE EVENT DATE: 20201120
